FAERS Safety Report 18760798 (Version 2)
Quarter: 2021Q1

REPORT INFORMATION
  Report Type: Spontaneous
  Country: US (occurrence: US)
  Receive Date: 20210119
  Receipt Date: 20210125
  Transmission Date: 20210419
  Serious: Yes (Other)
  Sender: FDA-Public Use
  Company Number: US-PFIZER INC-2021035550

PATIENT
  Age: 43 Year
  Sex: Female

DRUGS (9)
  1. EPINEPHRINE. [Suspect]
     Active Substance: EPINEPHRINE
     Indication: ANAPHYLACTIC REACTION
     Dosage: UNK
     Route: 030
  2. BENADRYL [Suspect]
     Active Substance: DIPHENHYDRAMINE HYDROCHLORIDE
     Dosage: UNK
  3. ALBUTEROL [SALBUTAMOL] [Suspect]
     Active Substance: ALBUTEROL
     Dosage: UNK
  4. EPINEPHRINE. [Suspect]
     Active Substance: EPINEPHRINE
     Indication: URTICARIA
  5. SOLU?MEDROL [Suspect]
     Active Substance: METHYLPREDNISOLONE SODIUM SUCCINATE
     Dosage: UNK
  6. CLARITINE [Suspect]
     Active Substance: LORATADINE
     Dosage: UNK
  7. EPINEPHRINE. [Suspect]
     Active Substance: EPINEPHRINE
     Indication: SWELLING
  8. OXYGEN. [Suspect]
     Active Substance: OXYGEN
     Dosage: UNK
  9. PEPCID [Suspect]
     Active Substance: FAMOTIDINE
     Dosage: UNK

REACTIONS (1)
  - Therapeutic product effect incomplete [Recovering/Resolving]

NARRATIVE: CASE EVENT DATE: 20210111
